FAERS Safety Report 6060985-7 (Version None)
Quarter: 2009Q1

REPORT INFORMATION
  Report Type: 
  Country: None (occurrence: None)
  Receive Date: 20090202
  Receipt Date: 20090122
  Transmission Date: 20090719
  Serious: No
  Sender: FDA-Public Use
  Company Number: US-JNJFOC-20090106350

PATIENT
  Sex: Male
  Weight: 95.26 kg

DRUGS (1)
  1. DURAGESIC-100 [Suspect]
     Indication: MUSCULOSKELETAL PAIN
     Route: 062

REACTIONS (2)
  - NASAL CONGESTION [None]
  - WRONG TECHNIQUE IN DRUG USAGE PROCESS [None]
